FAERS Safety Report 9613421 (Version 2)
Quarter: 2013Q4

REPORT INFORMATION
  Report Type: Spontaneous
  Country: US (occurrence: US)
  Receive Date: 20131010
  Receipt Date: 20131016
  Transmission Date: 20140711
  Serious: No
  Sender: FDA-Public Use
  Company Number: US-PFIZER INC-2013289753

PATIENT
  Age: 80 Year
  Sex: Female
  Weight: 86.17 kg

DRUGS (10)
  1. REVATIO [Suspect]
     Indication: PULMONARY HYPERTENSION
     Dosage: 20 MG, 3X/DAY
     Route: 048
     Dates: start: 2012
  2. REVATIO [Suspect]
     Dosage: 20 MG, 2X/DAY
  3. METOPROLOL [Concomitant]
     Dosage: 50 MG, 2X/DAY
  4. AMLODIPINE BESILATE/OLMESARTAN MEDOXOMIL [Concomitant]
     Indication: HYPERTENSION
     Dosage: AMLODIPINE BESILATE 5MG / OLMESARTAN MEDOXOMIL40 MG, ONCE A DAY
  5. FUROSEMIDE [Concomitant]
     Dosage: 20 MG, 1X/DAY
  6. DIGOXIN [Concomitant]
     Dosage: 1.25 MG, 1X/DAY
  7. CLOPIDOGREL [Concomitant]
     Dosage: 75 MG, ALTERNATE DAY
  8. WARFARIN [Concomitant]
     Dosage: 2.5 MG, 1X/DAY
  9. ATORVASTATIN [Concomitant]
     Dosage: 20 MG, 1X/DAY
  10. TYLENOL [Concomitant]
     Indication: HEADACHE

REACTIONS (2)
  - Dizziness [Recovered/Resolved]
  - Dyspnoea [Recovered/Resolved]
